FAERS Safety Report 19510902 (Version 1)
Quarter: 2021Q3

REPORT INFORMATION
  Report Type: Spontaneous
  Country: US (occurrence: US)
  Receive Date: 20210709
  Receipt Date: 20210709
  Transmission Date: 20211014
  Serious: Yes (Hospitalization)
  Sender: FDA-Public Use
  Company Number: None

PATIENT
  Age: 67 Year
  Sex: Female
  Weight: 85.1 kg

DRUGS (2)
  1. BEVACIZUMAB (RHUMAB VEGF) [Suspect]
     Active Substance: BEVACIZUMAB
     Dates: end: 20210524
  2. DOXIL [Suspect]
     Active Substance: DOXORUBICIN HYDROCHLORIDE

REACTIONS (3)
  - Neutropenia [None]
  - Headache [None]
  - Small intestinal obstruction [None]

NARRATIVE: CASE EVENT DATE: 20210624
